FAERS Safety Report 6243157-2 (Version None)
Quarter: 2009Q2

REPORT INFORMATION
  Report Type: 
  Country: None (occurrence: None)
  Receive Date: 20090622
  Receipt Date: 20090612
  Transmission Date: 20091009
  Serious: Yes (Life-Threatening)
  Sender: FDA-Public Use
  Company Number: ADR4932009 (BFARM REF NO:. DE-BFARM

PATIENT
  Sex: Female

DRUGS (1)
  1. SIMVASTATIN [Suspect]
     Indication: HYPERCHOLESTEROLAEMIA
     Dosage: 10 MG, 1 DAY, ORAL
     Route: 048
     Dates: start: 20061001, end: 20080130

REACTIONS (2)
  - PETECHIAE [None]
  - SCLERODERMA [None]
